FAERS Safety Report 8288563-X (Version None)
Quarter: 2012Q2

REPORT INFORMATION
  Report Type: 
  Country: None (occurrence: None)
  Receive Date: 20120416
  Receipt Date: 20120327
  Transmission Date: 20120825
  Serious: Yes (Hospitalization, Other)
  Sender: FDA-Public Use
  Company Number: DE-PFIZER INC-2012081482

PATIENT
  Age: 65 Year
  Sex: Female
  Weight: 66 kg

DRUGS (11)
  1. RAMIPRIL [Suspect]
     Dosage: 10 MG, UNK
     Route: 048
     Dates: start: 20050101
  2. ALFACALCIDOL [Concomitant]
     Dosage: UNK
     Dates: start: 20120101
  3. INSIDON [Suspect]
     Dosage: 100 MG, UNK
     Route: 048
  4. INSULIN [Concomitant]
  5. CYNT [Concomitant]
     Dosage: 0.4 MG, UNK
     Dates: start: 20111120
  6. LEVOTHYROXINE SODIUM [Suspect]
     Dosage: 200 UG, UNK
     Route: 048
     Dates: start: 20060101
  7. TORSEMIDE [Suspect]
     Dosage: 200 MG, UNK
     Route: 048
     Dates: start: 20050101
  8. METOPROLOL [Concomitant]
     Dosage: UNK
     Dates: start: 20120101
  9. PANTOPRAZOLE [Suspect]
     Dosage: 20 MG, UNK
     Route: 048
     Dates: start: 20040101
  10. AMLODIPINE BESYLATE [Suspect]
     Dosage: 10 MG, UNK
     Dates: start: 20110101
  11. RASILEZ [Suspect]
     Dosage: 150 MG, UNK
     Route: 048
     Dates: start: 20081016, end: 20110301

REACTIONS (2)
  - BLOOD PRESSURE INCREASED [None]
  - CEREBROVASCULAR ACCIDENT [None]
